FAERS Safety Report 11739864 (Version 3)
Quarter: 2016Q1

REPORT INFORMATION
  Report Type: Spontaneous
  Country: US (occurrence: US)
  Receive Date: 20151113
  Receipt Date: 20160223
  Transmission Date: 20160525
  Serious: Yes (Hospitalization, Other)
  Sender: FDA-Public Use
  Company Number: US-PFIZER INC-2015384567

PATIENT
  Age: 39 Year
  Sex: Male
  Weight: 91 kg

DRUGS (1)
  1. REVATIO [Suspect]
     Active Substance: SILDENAFIL CITRATE
     Indication: PULMONARY EMBOLISM
     Dosage: 20 MG, 3X/DAY
     Route: 048
     Dates: start: 200805

REACTIONS (4)
  - Chest pain [Recovered/Resolved]
  - Acute chest syndrome [Unknown]
  - Sickle cell anaemia [Unknown]
  - Product use issue [Not Recovered/Not Resolved]

NARRATIVE: CASE EVENT DATE: 200805
